FAERS Safety Report 17618909 (Version 3)
Quarter: 2020Q2

REPORT INFORMATION
  Report Type: Report from Study
  Country: US (occurrence: US)
  Receive Date: 20200402
  Receipt Date: 20200520
  Transmission Date: 20200713
  Serious: Yes (Hospitalization)
  Sender: FDA-Public Use
  Company Number: US-ACTELION-A-NJ2018-179616

PATIENT
  Sex: Female
  Weight: 104.31 kg

DRUGS (4)
  1. OPSUMIT [Suspect]
     Active Substance: MACITENTAN
     Dosage: 10 MG, QD
     Route: 048
  2. OPSUMIT [Suspect]
     Active Substance: MACITENTAN
     Indication: PULMONARY ARTERIAL HYPERTENSION
     Dosage: 10 MG, QD
     Route: 048
     Dates: start: 20171207
  3. DOXYCYCLINE. [Concomitant]
     Active Substance: DOXYCYCLINE
  4. COUMADIN [Concomitant]
     Active Substance: WARFARIN SODIUM

REACTIONS (12)
  - Diabetes mellitus [Unknown]
  - Nasal congestion [Unknown]
  - Dyspnoea [Unknown]
  - Back pain [Unknown]
  - Blood count abnormal [Unknown]
  - Fall [Unknown]
  - Peripheral swelling [Unknown]
  - Cellulitis [Unknown]
  - Sinus disorder [Unknown]
  - Platelet count decreased [Unknown]
  - Nasopharyngitis [Unknown]
  - Fluid retention [Unknown]
